FAERS Safety Report 21174690 (Version 2)
Quarter: 2022Q3

REPORT INFORMATION
  Report Type: Report from Study
  Country: US (occurrence: US)
  Receive Date: 20220805
  Receipt Date: 20220818
  Transmission Date: 20221026
  Serious: No
  Sender: FDA-Public Use
  Company Number: US-ACADIA PHARMACEUTICALS INC.-ACA-2022-PIM-002410

PATIENT
  Sex: Female

DRUGS (4)
  1. NUPLAZID [Interacting]
     Active Substance: PIMAVANSERIN TARTRATE
     Indication: Parkinson^s disease psychosis
     Dosage: 34 MILLIGRAM, QD
     Route: 065
     Dates: start: 20220606, end: 20220627
  2. NUPLAZID [Interacting]
     Active Substance: PIMAVANSERIN TARTRATE
     Dosage: 34 MILLIGRAM, QD
     Route: 048
     Dates: start: 20220627, end: 20220718
  3. PAXIL [Interacting]
     Active Substance: PAROXETINE HYDROCHLORIDE
  4. SEROQUEL [Interacting]
     Active Substance: QUETIAPINE FUMARATE

REACTIONS (4)
  - Drug interaction [Not Recovered/Not Resolved]
  - Road traffic accident [Unknown]
  - Ill-defined disorder [Unknown]
  - Hallucination [Not Recovered/Not Resolved]

NARRATIVE: CASE EVENT DATE: 20220101
